FAERS Safety Report 6223577-2 (Version None)
Quarter: 2009Q2

REPORT INFORMATION
  Report Type: 
  Country: None (occurrence: None)
  Receive Date: 20090610
  Receipt Date: 20090601
  Transmission Date: 20091009
  Serious: Yes (Hospitalization, Other)
  Sender: FDA-Public Use
  Company Number: ADE2009-0648

PATIENT
  Age: 30 Year
  Sex: Female

DRUGS (1)
  1. METFORMIN HCL [Suspect]
     Dosage: 850MG, ONE TIME, ORAL
     Route: 048

REACTIONS (28)
  - ABDOMINAL PAIN UPPER [None]
  - AGITATION [None]
  - ANOREXIA [None]
  - BLOOD AMYLASE INCREASED [None]
  - BLOOD BICARBONATE DECREASED [None]
  - BLOOD CREATINE INCREASED [None]
  - BLOOD CREATINE PHOSPHOKINASE INCREASED [None]
  - BLOOD GLUCOSE INCREASED [None]
  - BLOOD LACTIC ACID INCREASED [None]
  - BLOOD PH DECREASED [None]
  - BLOOD PHOSPHORUS INCREASED [None]
  - BLOOD POTASSIUM DECREASED [None]
  - CONFUSIONAL STATE [None]
  - HAEMODIALYSIS [None]
  - HYPOTENSION [None]
  - HYPOTHERMIA [None]
  - INCORRECT DOSE ADMINISTERED [None]
  - LACTIC ACIDOSIS [None]
  - LETHARGY [None]
  - MEMORY IMPAIRMENT [None]
  - MYOGLOBIN BLOOD INCREASED [None]
  - NAUSEA [None]
  - OXYGEN SATURATION DECREASED [None]
  - RESPIRATORY RATE INCREASED [None]
  - SINUS BRADYCARDIA [None]
  - SOMNOLENCE [None]
  - SUICIDE ATTEMPT [None]
  - VOMITING [None]
